FAERS Safety Report 22672779 (Version 2)
Quarter: 2023Q4

REPORT INFORMATION
  Report Type: Spontaneous
  Country: US (occurrence: US)
  Receive Date: 20230705
  Receipt Date: 20231011
  Transmission Date: 20240109
  Serious: No
  Sender: FDA-Public Use
  Company Number: US-SA-SAC20230703000820

PATIENT
  Sex: Male

DRUGS (1)
  1. DUPIXENT [Suspect]
     Active Substance: DUPILUMAB
     Dosage: 200MG, FREQUENCY; OTHER
     Route: 058

REACTIONS (3)
  - Viral rash [Recovered/Resolved]
  - Pruritus [Unknown]
  - Rash [Unknown]
